FAERS Safety Report 5698332-2 (Version None)
Quarter: 2008Q2

REPORT INFORMATION
  Report Type: 
  Country: None (occurrence: None)
  Receive Date: 20080408
  Receipt Date: 20080327
  Transmission Date: 20081010
  Serious: Yes (Hospitalization, Other)
  Sender: FDA-Public Use
  Company Number: US-PFIZER INC-2008029357

PATIENT
  Age: 66 Year
  Sex: Female
  Weight: 95.454 kg

DRUGS (8)
  1. CHANTIX [Suspect]
     Indication: SMOKING CESSATION THERAPY
     Dates: start: 20070101, end: 20071222
  2. DIOVAN [Concomitant]
  3. CLONIDINE HCL [Concomitant]
  4. ADVIL [Concomitant]
     Indication: ARTHRALGIA
  5. ALEVE [Concomitant]
     Indication: ARTHRALGIA
  6. VITAMIN B-12 [Concomitant]
  7. BABYPRIN [Concomitant]
  8. TYLENOL (CAPLET) [Concomitant]
     Indication: ARTHRALGIA

REACTIONS (2)
  - HEART RATE IRREGULAR [None]
  - MYOCARDIAL INFARCTION [None]
